FAERS Safety Report 8923065 (Version 3)
Quarter: 2013Q3

REPORT INFORMATION
  Report Type: Spontaneous
  Country: US (occurrence: US)
  Receive Date: 20121123
  Receipt Date: 20130903
  Transmission Date: 20140515
  Serious: Yes (Other)
  Sender: FDA-Public Use
  Company Number: US-ROCHE-1112250

PATIENT
  Age: 15 Year
  Sex: Male
  Weight: 93.07 kg

DRUGS (1)
  1. ACCUTANE [Suspect]
     Indication: ACNE
     Route: 048
     Dates: start: 19940908, end: 199502

REACTIONS (3)
  - Crohn^s disease [Unknown]
  - Anal fistula [Unknown]
  - Blood triglycerides increased [Unknown]
